FAERS Safety Report 13199502 (Version 1)
Quarter: 2017Q1

REPORT INFORMATION
  Report Type: Spontaneous
  Country: ZA (occurrence: ZA)
  Receive Date: 20170208
  Receipt Date: 20170208
  Transmission Date: 20170428
  Serious: Yes (Death, Other)
  Sender: FDA-Public Use
  Company Number: ZA-PFIZER INC-2017056234

PATIENT
  Age: 76 Year
  Sex: Male

DRUGS (6)
  1. LIPOGEN /00638501/ [Concomitant]
     Indication: BLOOD CHOLESTEROL
     Dosage: 10 MG
     Route: 048
     Dates: start: 20160824
  2. BIGSENS [Concomitant]
     Active Substance: METFORMIN HYDROCHLORIDE
     Indication: DIABETES MELLITUS
     Dosage: 1000 MG (UNSPECIFIED FREQUENCY)
     Route: 048
     Dates: start: 20160824
  3. CARVETREND [Concomitant]
     Active Substance: CARVEDILOL
     Indication: HYPERTENSION
     Dosage: 6.25 MG
     Route: 048
     Dates: start: 20160824
  4. CO PRITOR [Concomitant]
     Indication: HYPERTENSION
     Dosage: 12.5/80 MG
     Route: 048
     Dates: start: 20160824
  5. CARZIN [Concomitant]
     Indication: PROSTATIC DISORDER
     Dosage: 4 MG
     Route: 048
     Dates: start: 20160824
  6. LOMANOR [Suspect]
     Active Substance: AMLODIPINE BESYLATE
     Indication: HYPERTENSION
     Dosage: 10 MG (UNSPECIFIED FREQUENCY)
     Route: 048
     Dates: start: 20160824

REACTIONS (2)
  - Nephrolithiasis [Unknown]
  - Cardiac disorder [Fatal]

NARRATIVE: CASE EVENT DATE: 20170118
